FAERS Safety Report 13584747 (Version 3)
Quarter: 2018Q3

REPORT INFORMATION
  Report Type: Spontaneous
  Country: ES (occurrence: ES)
  Receive Date: 20170526
  Receipt Date: 20180912
  Transmission Date: 20181010
  Serious: Yes (Other)
  Sender: FDA-Public Use
  Company Number: ES-AUROBINDO-AUR-APL-2017-34621

PATIENT

DRUGS (2)
  1. OMEPRAZOLE. [Suspect]
     Active Substance: OMEPRAZOLE
     Indication: PRODUCT USED FOR UNKNOWN INDICATION
     Dosage: UNK
     Route: 065
  2. RANITIDINE. [Suspect]
     Active Substance: RANITIDINE
     Indication: PRODUCT USED FOR UNKNOWN INDICATION
     Route: 065

REACTIONS (8)
  - Type I hypersensitivity [Unknown]
  - Rash erythematous [Unknown]
  - Pruritus [Unknown]
  - Occupational exposure to product [Unknown]
  - Occupational dermatitis [Unknown]
  - Rash [Unknown]
  - Eczema [Unknown]
  - Type IV hypersensitivity reaction [Unknown]
